FAERS Safety Report 23531136 (Version 1)
Quarter: 2024Q1

REPORT INFORMATION
  Report Type: Spontaneous
  Country: IT (occurrence: IT)
  Receive Date: 20240216
  Receipt Date: 20240216
  Transmission Date: 20240410
  Serious: Yes (Hospitalization)
  Sender: FDA-Public Use
  Company Number: IT-MINISAL02-950491

PATIENT
  Age: 73 Year
  Sex: Female
  Weight: 64 kg

DRUGS (5)
  1. IRINOTECAN [Suspect]
     Active Substance: IRINOTECAN
     Indication: Adenocarcinoma pancreas
     Dosage: 180 MILLIGRAM/SQ. METER, TOTAL DOSE 250 MG
     Route: 040
     Dates: start: 20230920, end: 20230920
  2. OXALIPLATIN [Suspect]
     Active Substance: OXALIPLATIN
     Indication: Adenocarcinoma pancreas
     Dosage: 85 MILLIGRAM/SQ. METER, TOTAL DOSE 120MG
     Route: 040
     Dates: start: 20230920, end: 20230920
  3. FLUOROURACIL [Suspect]
     Active Substance: FLUOROURACIL
     Indication: Adenocarcinoma pancreas
     Dosage: 2400 MILLIGRAM/SQ. METER, TOTAL DOSE 2000MG
     Route: 040
     Dates: start: 20230920, end: 20230920
  4. OCTREOTIDE ACETATE [Concomitant]
     Active Substance: OCTREOTIDE ACETATE
     Indication: Hypercholesterolaemia
     Dosage: UNK
     Route: 065
  5. BISOPROLOL [Concomitant]
     Active Substance: BISOPROLOL\BISOPROLOL FUMARATE
     Indication: Hypertension
     Dosage: UNK
     Route: 065

REACTIONS (2)
  - Abdominal pain [Recovering/Resolving]
  - Off label use [Recovering/Resolving]

NARRATIVE: CASE EVENT DATE: 20230922
